FAERS Safety Report 10737023 (Version 1)
Quarter: 2015Q1

REPORT INFORMATION
  Report Type: Spontaneous
  Country: US (occurrence: US)
  Receive Date: 20150126
  Receipt Date: 20150126
  Transmission Date: 20150721
  Serious: No
  Sender: FDA-Public Use
  Company Number: US-BAYER-2015-007257

PATIENT
  Age: 72 Year
  Sex: Male
  Weight: 93 kg

DRUGS (3)
  1. IRON SUPPLEMENT [Concomitant]
     Active Substance: IRON
  2. FOLIC ACID. [Concomitant]
     Active Substance: FOLIC ACID
  3. ALEVE PM [Suspect]
     Active Substance: DIPHENHYDRAMINE HYDROCHLORIDE\NAPROXEN SODIUM
     Indication: SLEEP DISORDER THERAPY
     Dosage: 2 DF, ONCE
     Route: 048
     Dates: start: 201410, end: 201410

REACTIONS (5)
  - Intentional product misuse [Unknown]
  - Vomiting [None]
  - Insomnia [Recovered/Resolved]
  - Adverse event [None]
  - Feeling abnormal [Recovered/Resolved]

NARRATIVE: CASE EVENT DATE: 201410
